FAERS Safety Report 9064387 (Version 1)
Quarter: 2013Q1

REPORT INFORMATION
  Report Type: Spontaneous
  Country: US (occurrence: US)
  Receive Date: 20130213
  Receipt Date: 20130213
  Transmission Date: 20140127
  Serious: Yes (Other)
  Sender: FDA-Public Use
  Company Number: US-PFIZER INC-2013055242

PATIENT
  Age: 71 Year
  Sex: Female
  Weight: 75.28 kg

DRUGS (5)
  1. LYRICA [Suspect]
     Indication: NEUROPATHY PERIPHERAL
     Dosage: 50 MG, UNK
     Dates: start: 200505
  2. LYRICA [Suspect]
     Dosage: 100 MG, UNK
  3. EFFEXOR XR [Suspect]
     Indication: ANXIETY
     Dosage: 75 MG, 1X/DAY
  4. LIPITOR [Suspect]
     Indication: BLOOD CHOLESTEROL INCREASED
     Dosage: 20 MG, 1X/DAY
  5. NEXIUM [Concomitant]
     Indication: GASTROOESOPHAGEAL REFLUX DISEASE
     Dosage: UNK, 1X/DAY

REACTIONS (7)
  - Rheumatoid arthritis [Unknown]
  - Cataract [Unknown]
  - Back disorder [Unknown]
  - Sjogren^s syndrome [Unknown]
  - Joint effusion [Unknown]
  - Chronic obstructive pulmonary disease [Unknown]
  - Dry eye [Unknown]
